FAERS Safety Report 4752327-1 (Version None)
Quarter: 2005Q3

REPORT INFORMATION
  Report Type: 
  Country: None (occurrence: None)
  Receive Date: 20050825
  Receipt Date: 20041203
  Transmission Date: 20060218
  Serious: Yes (Disabling)
  Sender: FDA-Public Use
  Company Number: GB-GLAXOSMITHKLINE-B0360346A

PATIENT
  Sex: Female

DRUGS (2)
  1. PAROXETINE HYDROCHLORIDE [Suspect]
     Indication: DEPRESSION
     Route: 048
     Dates: start: 19990713
  2. PAROXETINE HYDROCHLORIDE [Suspect]
     Dosage: 10MG PER DAY
     Route: 065

REACTIONS (5)
  - ABDOMINAL PAIN [None]
  - ANXIETY [None]
  - DRUG WITHDRAWAL SYNDROME [None]
  - PANIC ATTACK [None]
  - VULVOVAGINAL DISCOMFORT [None]
